FAERS Safety Report 11037610 (Version 1)
Quarter: 2015Q2

REPORT INFORMATION
  Report Type: Spontaneous
  Country: US (occurrence: None)
  Receive Date: 20150415
  Receipt Date: 20150415
  Transmission Date: 20150821
  Serious: No
  Sender: FDA-Public Use
  Company Number: None

PATIENT
  Age: 43 Year
  Sex: Female

DRUGS (1)
  1. STIVARGA [Suspect]
     Active Substance: REGORAFENIB
     Indication: COLON CANCER
     Dosage: DAYS 1-21 OF 28 DAY CYCLE
     Route: 048
     Dates: start: 20150409

REACTIONS (3)
  - Headache [None]
  - Dysphonia [None]
  - Myalgia [None]

NARRATIVE: CASE EVENT DATE: 20150413
